FAERS Safety Report 9630911 (Version 6)
Quarter: 2013Q4

REPORT INFORMATION
  Report Type: Spontaneous
  Country: US (occurrence: US)
  Receive Date: 20131018
  Receipt Date: 20131204
  Transmission Date: 20140711
  Serious: Yes (Hospitalization, Other)
  Sender: FDA-Public Use
  Company Number: US-PFIZER INC-2013296952

PATIENT
  Age: 63 Year
  Sex: Male
  Weight: 88.43 kg

DRUGS (4)
  1. REVATIO [Suspect]
     Indication: PULMONARY HYPERTENSION
     Dosage: 30 MG, 1X/DAY
     Dates: start: 2011
  2. LETAIRIS [Suspect]
     Indication: PULMONARY ARTERIAL HYPERTENSION
     Dosage: 5 MG, 1X/DAY
     Dates: start: 20120829, end: 201310
  3. LETAIRIS [Suspect]
     Indication: CONNECTIVE TISSUE DISORDER
  4. REMODULIN [Suspect]
     Indication: PULMONARY HYPERTENSION
     Dosage: 0.042 MG, ALTERNATE DAY (EVERY TWO DAYS)

REACTIONS (5)
  - Pulmonary hypertension [Unknown]
  - Right ventricular failure [Unknown]
  - Lung transplant [Recovered/Resolved]
  - Endotracheal intubation [Unknown]
  - Coma [Unknown]
